FAERS Safety Report 18152510 (Version 2)
Quarter: 2020Q3

REPORT INFORMATION
  Report Type: Not Available
  Country: US (occurrence: US)
  Receive Date: 20200814
  Receipt Date: 20200916
  Transmission Date: 20201103
  Serious: Yes (Death)
  Sender: FDA-Public Use
  Company Number: US-NEUROCRINE BIOSCIENCES INC.-2020NBI02928

PATIENT
  Age: 51 Year
  Sex: Male

DRUGS (6)
  1. MEGESTROL [Concomitant]
     Active Substance: MEGESTROL
     Indication: WEIGHT DECREASED
     Dosage: 625MG/5ML
     Dates: start: 20190911, end: 20200729
  2. CITALOPRAM [Concomitant]
     Active Substance: CITALOPRAM HYDROBROMIDE
     Indication: DEPRESSION
     Route: 048
     Dates: start: 20190311, end: 20200729
  3. DOXEPIN [Concomitant]
     Active Substance: DOXEPIN
     Indication: INSOMNIA
     Route: 048
     Dates: start: 20200504, end: 20200729
  4. INGREZZA [Suspect]
     Active Substance: VALBENAZINE
     Indication: HUNTINGTON^S DISEASE
  5. NAMZARIC [Concomitant]
     Active Substance: DONEPEZIL HYDROCHLORIDE\MEMANTINE HYDROCHLORIDE
     Indication: DEMENTIA
     Dosage: 28?10 (UNITS NOT PROVIDED)
     Route: 048
     Dates: start: 20170807, end: 20200729
  6. INGREZZA [Suspect]
     Active Substance: VALBENAZINE
     Indication: TARDIVE DYSKINESIA
     Route: 048
     Dates: start: 20180910, end: 20200729

REACTIONS (2)
  - Huntington^s disease [Fatal]
  - Off label use [Unknown]

NARRATIVE: CASE EVENT DATE: 20200729
